FAERS Safety Report 14409649 (Version 2)
Quarter: 2018Q1

REPORT INFORMATION
  Report Type: Spontaneous
  Country: US (occurrence: US)
  Receive Date: 20180119
  Receipt Date: 20180125
  Transmission Date: 20180509
  Serious: Yes (Death)
  Sender: FDA-Public Use
  Company Number: US-UNITED THERAPEUTICS-UNT-2017-015654

PATIENT
  Sex: Female

DRUGS (1)
  1. TYVASO [Suspect]
     Active Substance: TREPROSTINIL
     Indication: PULMONARY ARTERIAL HYPERTENSION
     Dosage: 72 ?G, QID
     Dates: start: 20140408

REACTIONS (6)
  - Dyspnoea [Unknown]
  - Death [Fatal]
  - Disease progression [Unknown]
  - Gait disturbance [Unknown]
  - Oxygen consumption increased [Unknown]
  - Off label use [Unknown]

NARRATIVE: CASE EVENT DATE: 2017
